FAERS Safety Report 19520968 (Version 4)
Quarter: 2021Q3

REPORT INFORMATION
  Report Type: Spontaneous
  Country: US (occurrence: US)
  Receive Date: 20210712
  Receipt Date: 20210922
  Transmission Date: 20211014
  Serious: Yes (Death, Hospitalization, Other)
  Sender: FDA-Public Use
  Company Number: US-009507513-2101USA009220

PATIENT
  Sex: Male

DRUGS (5)
  1. STERILE DILUENT (WATER) [Suspect]
     Active Substance: WATER
     Dosage: UNK
     Route: 058
     Dates: start: 20161115
  2. VACCINE, INFLUENZA [Concomitant]
     Active Substance: INFLUENZA VIRUS VACCINE
     Indication: PROPHYLAXIS
     Dosage: UNK
     Dates: start: 20161024
  3. ZOSTAVAX [Suspect]
     Active Substance: VARICELLA-ZOSTER VIRUS STRAIN OKA/MERCK LIVE ANTIGEN
     Indication: ROUTINE HEALTH MAINTENANCE
     Dosage: .65 MILLILITER
     Route: 058
     Dates: start: 20161115
  4. PNEUMOVAX 23 [Suspect]
     Active Substance: PNEUMOCOCCAL VACCINE, POLYVALENT 23
     Indication: PROPHYLAXIS
     Dosage: .5 MILLILITER
     Route: 030
     Dates: start: 20161115
  5. ZOSTAVAX [Suspect]
     Active Substance: VARICELLA-ZOSTER VIRUS STRAIN OKA/MERCK LIVE ANTIGEN
     Indication: PROPHYLAXIS

REACTIONS (36)
  - Hepatic mass [Fatal]
  - Hypokalaemia [Unknown]
  - Ventricular tachycardia [Unknown]
  - Delirium [Unknown]
  - Atelectasis [Unknown]
  - Asthenia [Unknown]
  - Pneumonia [Unknown]
  - Acute kidney injury [Recovered/Resolved]
  - Lung infiltration [Unknown]
  - Dizziness [Unknown]
  - Occult blood positive [Recovered/Resolved]
  - Faeces discoloured [Recovered/Resolved]
  - Cognitive disorder [Unknown]
  - Loss of consciousness [Unknown]
  - Dehydration [Unknown]
  - Leukocytosis [Unknown]
  - Fall [Unknown]
  - Dysstasia [Unknown]
  - Prerenal failure [Unknown]
  - Head injury [Unknown]
  - Pulmonary mass [Fatal]
  - Blood loss anaemia [Unknown]
  - Acute myocardial infarction [Unknown]
  - Dysphagia [Unknown]
  - Labelled drug-drug interaction medication error [Unknown]
  - Lung cancer metastatic [Fatal]
  - Acute respiratory failure [Unknown]
  - Acute kidney injury [Recovered/Resolved]
  - Electrolyte imbalance [Unknown]
  - Hypomagnesaemia [Unknown]
  - Vitamin D deficiency [Unknown]
  - Diarrhoea [Unknown]
  - Physical deconditioning [Unknown]
  - Acute respiratory failure [Fatal]
  - Sepsis [Unknown]
  - Malnutrition [Unknown]

NARRATIVE: CASE EVENT DATE: 20161115
